FAERS Safety Report 17922171 (Version 2)
Quarter: 2021Q2

REPORT INFORMATION
  Report Type: Spontaneous
  Country: DE (occurrence: DE)
  Receive Date: 20200622
  Receipt Date: 20210628
  Transmission Date: 20210717
  Serious: Yes (Other)
  Sender: FDA-Public Use
  Company Number: DE-TEVA-2020-DE-1787948

PATIENT
  Age: 64 Year
  Sex: Male
  Weight: 66 kg

DRUGS (2)
  1. LEVODOPA/CARBIDOPA?RATIOPHARM 100 MG/25 MG [Suspect]
     Active Substance: CARBIDOPA\LEVODOPA
     Dosage: 4 DOSAGE FORMS DAILY; 1 DF CONTAINS 100 MG LEVODOPA AND 25 MG CARBIDOPA
     Dates: start: 20121004
  2. SIFROL 1.05 MG RETARD [Concomitant]
     Dosage: 1.05 MILLIGRAM DAILY;
     Dates: start: 20100509

REACTIONS (1)
  - Erectile dysfunction [Unknown]

NARRATIVE: CASE EVENT DATE: 20160611
